FAERS Safety Report 22053841 (Version 4)
Quarter: 2023Q4

REPORT INFORMATION
  Report Type: Other
  Country: CA (occurrence: None)
  Receive Date: 20230302
  Receipt Date: 20231123
  Transmission Date: 20240110
  Serious: No
  Sender: FDA-Public Use
  Company Number: CA-ROCHE-3298017

PATIENT
  Age: 53 Year
  Sex: Female

DRUGS (1)
  1. OCREVUS [Suspect]
     Active Substance: OCRELIZUMAB
     Indication: Relapsing-remitting multiple sclerosis
     Route: 042
     Dates: start: 20221005

REACTIONS (10)
  - COVID-19 [Unknown]
  - Central nervous system lesion [Unknown]
  - Stress [Not Recovered/Not Resolved]
  - COVID-19 [Unknown]
  - Balance disorder [Unknown]
  - Menopausal symptoms [Not Recovered/Not Resolved]
  - Tension headache [Recovered/Resolved with Sequelae]
  - Hypertension [Recovered/Resolved]
  - Brain fog [Recovered/Resolved]
  - Stress [Not Recovered/Not Resolved]

NARRATIVE: CASE EVENT DATE: 20231001
